FAERS Safety Report 7427608-3 (Version None)
Quarter: 2011Q2

REPORT INFORMATION
  Report Type: 
  Country: None (occurrence: None)
  Receive Date: 20110420
  Receipt Date: 20110408
  Transmission Date: 20111010
  Serious: Yes (Hospitalization)
  Sender: FDA-Public Use
  Company Number: JP-BRISTOL-MYERS SQUIBB COMPANY-15540388

PATIENT
  Age: 53 Year
  Sex: Female
  Weight: 40 kg

DRUGS (9)
  1. SEIBULE [Concomitant]
     Indication: TYPE 2 DIABETES MELLITUS
     Dosage: TAB
     Route: 048
     Dates: start: 20100615
  2. TAFLUPROST [Concomitant]
     Indication: OCULAR HYPERTENSION
     Route: 047
     Dates: start: 20100615
  3. SAXAGLIPTIN [Suspect]
     Indication: TYPE 2 DIABETES MELLITUS
     Dosage: SAXAGLIPTIN TABS.
     Route: 048
     Dates: start: 20101130, end: 20101221
  4. AMARYL [Concomitant]
     Indication: TYPE 2 DIABETES MELLITUS
     Route: 048
     Dates: start: 20101222
  5. URSO 250 [Concomitant]
     Dosage: TAB
     Dates: start: 20110114
  6. CARNACULIN [Suspect]
     Indication: DIABETIC RETINOPATHY
     Dosage: 1 DF=50LU TAB
     Route: 048
     Dates: start: 20101001, end: 20110204
  7. NEO-MINOPHAGEN C [Concomitant]
     Dosage: INJ
     Route: 051
     Dates: start: 20110119
  8. JAPANESE KAMPO MEDICINE [Suspect]
     Indication: DIABETIC RETINOPATHY
     Dosage: GRANULES
     Route: 048
     Dates: start: 20101001, end: 20110204
  9. IODOLECITHINE [Suspect]
     Indication: DIABETIC RETINOPATHY
     Route: 048
     Dates: start: 20101001, end: 20110204

REACTIONS (1)
  - HEPATIC FUNCTION ABNORMAL [None]
